FAERS Safety Report 8887796 (Version 2)
Quarter: 2012Q4

REPORT INFORMATION
  Report Type: 
  Country: US (occurrence: US)
  Receive Date: 20121106
  Receipt Date: 20121119
  Transmission Date: 20130627
  Serious: Yes (Death, Hospitalization)
  Sender: FDA-Public Use
  Company Number: US-ACTELION-A-US2012-73463

PATIENT
  Age: 64 Year
  Sex: Female

DRUGS (3)
  1. VELETRI [Suspect]
     Indication: PULMONARY ARTERIAL HYPERTENSION
     Dosage: 41 ng/kg, per min
     Route: 042
     Dates: start: 20090918
  2. TRACLEER [Concomitant]
     Indication: PULMONARY ARTERIAL HYPERTENSION
     Route: 048
  3. COUMADIN [Concomitant]

REACTIONS (5)
  - Death [Fatal]
  - Lung neoplasm [Unknown]
  - Mental status changes [Unknown]
  - Pulmonary hypertension [Unknown]
  - Condition aggravated [Unknown]
